FAERS Safety Report 8786785 (Version 2)
Quarter: 2015Q2

REPORT INFORMATION
  Report Type: Report from Study
  Country: US (occurrence: US)
  Receive Date: 20120914
  Receipt Date: 20150406
  Transmission Date: 20150821
  Serious: Yes (Death)
  Sender: FDA-Public Use
  Company Number: US-ROCHE-1127015

PATIENT
  Sex: Female

DRUGS (11)
  1. TPA [Concomitant]
     Active Substance: ALTEPLASE
     Route: 042
  2. AVASTIN [Suspect]
     Active Substance: BEVACIZUMAB
     Indication: BRAIN NEOPLASM MALIGNANT
     Route: 042
  3. IRINOTECAN [Concomitant]
     Active Substance: IRINOTECAN
     Route: 042
  4. DECADRON [Concomitant]
     Active Substance: DEXAMETHASONE
     Route: 065
  5. ATROPINE [Concomitant]
     Active Substance: ATROPINE
     Route: 042
  6. DEXAMETHASONE. [Concomitant]
     Active Substance: DEXAMETHASONE
  7. ALOXI [Concomitant]
     Active Substance: PALONOSETRON HYDROCHLORIDE
     Route: 065
  8. OXYCODONE [Concomitant]
     Active Substance: OXYCODONE
  9. FENTANYL. [Concomitant]
     Active Substance: FENTANYL
     Route: 065
  10. FENTANYL. [Concomitant]
     Active Substance: FENTANYL
     Route: 065
  11. LOPERAMIDE [Concomitant]
     Active Substance: LOPERAMIDE

REACTIONS (15)
  - Dizziness [Unknown]
  - Muscular weakness [Unknown]
  - Dysarthria [Unknown]
  - Fatigue [Unknown]
  - Intention tremor [Unknown]
  - Diarrhoea [Unknown]
  - Death [Fatal]
  - Decreased appetite [Unknown]
  - Nausea [Unknown]
  - Proteinuria [Unknown]
  - Somnolence [Unknown]
  - Fall [Unknown]
  - Aphasia [Unknown]
  - Hypokalaemia [Unknown]
  - Confusional state [Unknown]
